FAERS Safety Report 5827071-X (Version None)
Quarter: 2008Q3

REPORT INFORMATION
  Report Type: 
  Country: None (occurrence: None)
  Receive Date: 20080730
  Receipt Date: 20080721
  Transmission Date: 20090109
  Serious: Yes (Hospitalization)
  Sender: FDA-Public Use
  Company Number: B0527296A

PATIENT
  Age: 69 Year
  Sex: Female

DRUGS (11)
  1. ALKERAN [Suspect]
     Indication: AMYLOIDOSIS
     Dosage: 4MG CYCLIC
     Route: 048
     Dates: start: 20080201
  2. DEXAMETHASONE [Suspect]
     Indication: AMYLOIDOSIS
     Dosage: 40MG CYCLIC
     Route: 048
     Dates: start: 20080201
  3. BISOPROLOL FUMARATE [Concomitant]
     Dosage: 5MG PER DAY
     Route: 048
  4. KARDEGIC [Concomitant]
     Dosage: 75MG PER DAY
     Route: 048
  5. AMLOR [Concomitant]
     Dosage: 10MG PER DAY
     Route: 048
  6. LASIX [Concomitant]
     Dosage: 125MG PER DAY
     Route: 048
  7. PANTOPRAZOLE SODIUM [Concomitant]
     Dosage: 40MG PER DAY
     Route: 048
  8. LANTUS [Concomitant]
     Route: 058
  9. CALCIDIA [Concomitant]
     Route: 065
  10. TARDYFERON B9 [Concomitant]
     Route: 065
  11. BICARBONATE DE SODIUM [Concomitant]
     Route: 065

REACTIONS (10)
  - ABDOMINAL PAIN [None]
  - ANOREXIA [None]
  - COLITIS EROSIVE [None]
  - DEHYDRATION [None]
  - DIARRHOEA [None]
  - DIARRHOEA HAEMORRHAGIC [None]
  - OEDEMA [None]
  - OFF LABEL USE [None]
  - RENAL IMPAIRMENT [None]
  - VOMITING [None]
